FAERS Safety Report 18514641 (Version 1)
Quarter: 2020Q4

REPORT INFORMATION
  Report Type: Report from Study
  Country: DE (occurrence: DE)
  Receive Date: 20201117
  Receipt Date: 20201117
  Transmission Date: 20210114
  Serious: Yes (Death)
  Sender: FDA-Public Use
  Company Number: DE-BEH-2020124818

PATIENT
  Age: 86 Year
  Sex: Male
  Weight: 60.5 kg

DRUGS (15)
  1. PRIVIGEN [Suspect]
     Active Substance: HUMAN IMMUNOGLOBULIN G
     Dosage: UNK
     Route: 042
     Dates: start: 20191223, end: 20191223
  2. PRIVIGEN [Suspect]
     Active Substance: HUMAN IMMUNOGLOBULIN G
     Dosage: UNK
     Route: 042
     Dates: start: 20200326, end: 20200326
  3. PRIVIGEN [Suspect]
     Active Substance: HUMAN IMMUNOGLOBULIN G
     Dosage: UNK
     Route: 042
     Dates: start: 20191223, end: 20191223
  4. PRIVIGEN [Suspect]
     Active Substance: HUMAN IMMUNOGLOBULIN G
     Dosage: 20 GRAM, TOT
     Route: 042
     Dates: start: 20200113, end: 20200113
  5. TORASEMIDE [Concomitant]
     Active Substance: TORSEMIDE
  6. PRIVIGEN [Suspect]
     Active Substance: HUMAN IMMUNOGLOBULIN G
     Dosage: 20 GRAM, TOT
     Route: 042
     Dates: start: 20200205, end: 20200205
  7. PRIVIGEN [Suspect]
     Active Substance: HUMAN IMMUNOGLOBULIN G
     Dosage: 20 GRAM, TOT
     Route: 042
     Dates: start: 20200320, end: 20200320
  8. PRIVIGEN [Suspect]
     Active Substance: HUMAN IMMUNOGLOBULIN G
     Dosage: UNK
     Route: 042
     Dates: start: 20200320, end: 20200320
  9. SIMVASTATIN. [Concomitant]
     Active Substance: SIMVASTATIN
  10. PRIVIGEN [Suspect]
     Active Substance: HUMAN IMMUNOGLOBULIN G
     Dosage: 20 GRAM, TOT
     Route: 042
     Dates: start: 20200326, end: 20200326
  11. METOPROLOL. [Concomitant]
     Active Substance: METOPROLOL
  12. PRIVIGEN [Suspect]
     Active Substance: HUMAN IMMUNOGLOBULIN G
     Indication: HUMORAL IMMUNE DEFECT
     Dosage: 20 GRAM, TOT
     Route: 042
     Dates: start: 20191223, end: 20191223
  13. PRIVIGEN [Suspect]
     Active Substance: HUMAN IMMUNOGLOBULIN G
     Dosage: UNK
     Route: 042
     Dates: start: 20200205, end: 20200205
  14. PRIVIGEN [Suspect]
     Active Substance: HUMAN IMMUNOGLOBULIN G
     Dosage: UNK
     Route: 042
     Dates: start: 20200113, end: 20200113
  15. VOCADO HCT [Concomitant]
     Active Substance: AMLODIPINE BESYLATE\HYDROCHLOROTHIAZIDE\OLMESARTAN MEDOXOMIL

REACTIONS (2)
  - Neoplasm progression [Fatal]
  - Lymphoma [Fatal]
